FAERS Safety Report 6128243-X (Version None)
Quarter: 2009Q1

REPORT INFORMATION
  Report Type: 
  Country: None (occurrence: None)
  Receive Date: 20090319
  Receipt Date: 20070703
  Transmission Date: 20090719
  Serious: Yes (Life-Threatening, Disabling)
  Sender: FDA-Public Use
  Company Number: 02100-JPN--06-0293

PATIENT
  Age: 79 Year
  Sex: Female

DRUGS (1)
  1. PLETAL [Suspect]
     Indication: CEREBROVASCULAR ACCIDENT
     Dosage: 100 MG, BID ORAL
     Route: 048
     Dates: start: 20060606, end: 20060621

REACTIONS (7)
  - ACUTE MYOCARDIAL INFARCTION [None]
  - CEREBRAL ARTERY OCCLUSION [None]
  - CEREBRAL ARTERY STENOSIS [None]
  - CEREBRAL INFARCTION [None]
  - DYSPNOEA [None]
  - PULMONARY EMBOLISM [None]
  - SOMNOLENCE [None]
